FAERS Safety Report 14946899 (Version 5)
Quarter: 2018Q3

REPORT INFORMATION
  Report Type: Spontaneous
  Country: CA (occurrence: CA)
  Receive Date: 20180529
  Receipt Date: 20180905
  Transmission Date: 20181010
  Serious: Yes (Other)
  Sender: FDA-Public Use
  Company Number: CA-PFIZER INC-2017511512

PATIENT
  Age: 52 Year
  Sex: Female

DRUGS (3)
  1. PREDNISONE. [Concomitant]
     Active Substance: PREDNISONE
     Dosage: UNK
  2. TURMERIC /01079602/ [Concomitant]
     Active Substance: HERBALS\TURMERIC
     Dosage: UNK, 1X/DAY
     Route: 048
  3. XELJANZ [Suspect]
     Active Substance: TOFACITINIB CITRATE
     Indication: RHEUMATOID ARTHRITIS
     Dosage: 5 MG, 2X/DAY
     Route: 048
     Dates: start: 20171024, end: 201807

REACTIONS (13)
  - Drug effect incomplete [Recovering/Resolving]
  - Musculoskeletal discomfort [Unknown]
  - Muscle rupture [Unknown]
  - Lymphoma [Not Recovered/Not Resolved]
  - Weight decreased [Unknown]
  - Joint dislocation [Unknown]
  - Peripheral coldness [Not Recovered/Not Resolved]
  - Lipoma [Not Recovered/Not Resolved]
  - Road traffic accident [Unknown]
  - Drug effect delayed [Unknown]
  - Dysstasia [Not Recovered/Not Resolved]
  - Hypoaesthesia [Not Recovered/Not Resolved]
  - Pneumonia [Recovering/Resolving]

NARRATIVE: CASE EVENT DATE: 201710
